FAERS Safety Report 20700330 (Version 2)
Quarter: 2022Q2

REPORT INFORMATION
  Report Type: Spontaneous
  Country: US (occurrence: None)
  Receive Date: 20220412
  Receipt Date: 20220427
  Transmission Date: 20220721
  Serious: Yes (Other)
  Sender: FDA-Public Use
  Company Number: 2022A138273

PATIENT
  Sex: Female

DRUGS (2)
  1. FARXIGA [Suspect]
     Active Substance: DAPAGLIFLOZIN PROPANEDIOL
     Indication: Diabetes mellitus
     Route: 048
     Dates: start: 2021
  2. PIOGLITAZONE [Concomitant]
     Active Substance: PIOGLITAZONE

REACTIONS (6)
  - Chronic kidney disease [Unknown]
  - Renal failure [Unknown]
  - Renal impairment [Unknown]
  - Joint injury [Unknown]
  - Glycosylated haemoglobin increased [Unknown]
  - Renal pain [Unknown]
